FAERS Safety Report 13627284 (Version 1)
Quarter: 2017Q2

REPORT INFORMATION
  Report Type: Report from Study
  Country: SE (occurrence: SE)
  Receive Date: 20170607
  Receipt Date: 20170607
  Transmission Date: 20170830
  Serious: Yes (Death, Hospitalization)
  Sender: FDA-Public Use
  Company Number: SE-ROCHE-1367106

PATIENT
  Age: 70 Year
  Sex: Male
  Weight: 71.5 kg

DRUGS (8)
  1. OMEPRAZOLE. [Concomitant]
     Active Substance: OMEPRAZOLE
     Route: 065
     Dates: start: 20140206
  2. BETAMETASON [Concomitant]
     Route: 065
     Dates: start: 20140120
  3. FINASTERID [Concomitant]
     Active Substance: FINASTERIDE
     Route: 065
     Dates: start: 2000
  4. METOCLOPRAMIDE. [Concomitant]
     Active Substance: METOCLOPRAMIDE
     Route: 065
     Dates: start: 20140219
  5. FELODIPIN [Concomitant]
     Active Substance: FELODIPINE
     Route: 065
     Dates: start: 2009, end: 20140213
  6. TEMOZOLOMID [Suspect]
     Active Substance: TEMOZOLOMIDE
     Indication: BRAIN NEOPLASM MALIGNANT
     Dosage: LAST DOSE PRIOR TO SAE: 13/MAR/2014
     Route: 048
     Dates: start: 20140219, end: 20140324
  7. BEVACIZUMAB [Suspect]
     Active Substance: BEVACIZUMAB
     Indication: BRAIN NEOPLASM MALIGNANT
     Dosage: LAST DOSE PRIOR TO SAE: 05/MAR/2014.
     Route: 042
     Dates: start: 20140219, end: 20140313
  8. ENALAPRIL [Concomitant]
     Active Substance: ENALAPRIL
     Route: 065
     Dates: start: 2009

REACTIONS (1)
  - Pulmonary embolism [Fatal]

NARRATIVE: CASE EVENT DATE: 20140312
